FAERS Safety Report 6845712-5 (Version None)
Quarter: 2010Q3

REPORT INFORMATION
  Report Type: 
  Country: None (occurrence: None)
  Receive Date: 20100715
  Receipt Date: 20070824
  Transmission Date: 20110219
  Serious: No
  Sender: FDA-Public Use
  Company Number: US-PFIZER INC-2007071052

PATIENT
  Age: 50 Year
  Sex: Female
  Weight: 70.4 kg

DRUGS (4)
  1. CHANTIX [Suspect]
     Indication: SMOKING CESSATION THERAPY
     Dates: start: 20070803, end: 20070801
  2. METHOTREXATE [Concomitant]
  3. REMICADE [Concomitant]
     Route: 042
  4. OXYCONTIN [Concomitant]

REACTIONS (5)
  - ABNORMAL DREAMS [None]
  - DARK CIRCLES UNDER EYES [None]
  - DEPRESSION [None]
  - NAUSEA [None]
  - SLEEP DISORDER [None]
